FAERS Safety Report 25595594 (Version 1)
Quarter: 2025Q3

REPORT INFORMATION
  Report Type: Report from Study
  Country: US (occurrence: US)
  Receive Date: 20250723
  Receipt Date: 20250723
  Transmission Date: 20251021
  Serious: Yes (Hospitalization, Other)
  Sender: BIOGEN
  Company Number: US-BIOGENIDEC-2015BI122179

PATIENT
  Age: 54 Year
  Sex: Female

DRUGS (1)
  1. TYSABRI [Suspect]
     Active Substance: NATALIZUMAB
     Indication: Multiple sclerosis
     Route: 050
     Dates: start: 20150202

REACTIONS (13)
  - Benign neoplasm of skin [Recovered/Resolved]
  - Craniofacial fracture [Recovered/Resolved]
  - Ankle fracture [Recovered/Resolved]
  - Fall [Recovered/Resolved]
  - Anaesthetic complication [Recovered/Resolved]
  - Nasal congestion [Recovered/Resolved]
  - Epistaxis [Recovered/Resolved]
  - Muscle spasticity [Recovered/Resolved]
  - Memory impairment [Recovered/Resolved]
  - Fear [Unknown]
  - Nervousness [Unknown]
  - Balance disorder [Unknown]
  - Bone cyst excision [Recovered/Resolved]

NARRATIVE: CASE EVENT DATE: 20150401
